FAERS Safety Report 4942497-4 (Version None)
Quarter: 2006Q1

REPORT INFORMATION
  Report Type: 
  Country: None (occurrence: None)
  Receive Date: 20060313
  Receipt Date: 20050317
  Transmission Date: 20060701
  Serious: No
  Sender: FDA-Public Use
  Company Number: US-GLAXOSMITHKLINE-A0550221A

PATIENT
  Age: 56 Year
  Sex: Female

DRUGS (2)
  1. NICORETTE (ORANGE) [Suspect]
     Dates: start: 20050313, end: 20050316
  2. NICORETTE (MINT) [Suspect]
     Dates: start: 20050307

REACTIONS (7)
  - BURNING SENSATION MUCOSAL [None]
  - COUGH [None]
  - GLOSSODYNIA [None]
  - NASAL DISCOMFORT [None]
  - NAUSEA [None]
  - THROAT IRRITATION [None]
  - TOOTH DISORDER [None]
